FAERS Safety Report 17448859 (Version 1)
Quarter: 2020Q1

REPORT INFORMATION
  Report Type: Spontaneous
  Country: FR (occurrence: FR)
  Receive Date: 20200224
  Receipt Date: 20200224
  Transmission Date: 20200409
  Serious: Yes (Hospitalization)
  Sender: FDA-Public Use
  Company Number: FR-BEH-2020113283

PATIENT
  Age: 28 Year
  Sex: Female
  Weight: 55 kg

DRUGS (9)
  1. ROVALCYTE [Suspect]
     Active Substance: VALGANCICLOVIR HYDROCHLORIDE
     Indication: PROPHYLAXIS
     Route: 048
     Dates: end: 20191222
  2. RITUXIMAB. [Concomitant]
     Active Substance: RITUXIMAB
  3. SOLU-MEDROL [Suspect]
     Active Substance: METHYLPREDNISOLONE SODIUM SUCCINATE
     Indication: SUSAC^S SYNDROME
     Route: 042
     Dates: start: 20191219, end: 20191221
  4. PANTOPRAZOLE [Suspect]
     Active Substance: PANTOPRAZOLE
     Indication: PROPHYLAXIS
     Route: 042
     Dates: start: 20191221, end: 20191221
  5. IMOVANE [Suspect]
     Active Substance: ZOPICLONE
     Indication: PRODUCT USED FOR UNKNOWN INDICATION
     Route: 048
     Dates: start: 20191221, end: 20191221
  6. OPTIMIZETTE [Concomitant]
     Active Substance: DESOGESTREL
     Route: 048
  7. PRIVIGEN [Suspect]
     Active Substance: HUMAN IMMUNOGLOBULIN G
     Indication: SUSAC^S SYNDROME
     Route: 042
     Dates: start: 20191219, end: 20191220
  8. COUMADINE [Suspect]
     Active Substance: WARFARIN SODIUM
     Indication: ANTICOAGULANT THERAPY
     Route: 048
     Dates: end: 20191221
  9. INNOHEP [Concomitant]
     Active Substance: TINZAPARIN SODIUM
     Route: 058

REACTIONS (3)
  - No adverse event [Unknown]
  - Product use in unapproved indication [Unknown]
  - Hepatocellular injury [Recovering/Resolving]

NARRATIVE: CASE EVENT DATE: 20191222
